FAERS Safety Report 24879890 (Version 1)
Quarter: 2025Q1

REPORT INFORMATION
  Report Type: Report from Study
  Country: US (occurrence: US)
  Receive Date: 20250123
  Receipt Date: 20250123
  Transmission Date: 20250409
  Serious: Yes (Other)
  Sender: ABBVIE
  Company Number: US-ABBVIE-6092364

PATIENT
  Sex: Female

DRUGS (1)
  1. HUMIRA [Suspect]
     Active Substance: ADALIMUMAB
     Indication: Rheumatoid arthritis
     Route: 058

REACTIONS (9)
  - Knee arthroplasty [Recovered/Resolved]
  - Hand deformity [Recovered/Resolved]
  - Upper limb fracture [Unknown]
  - Tooth loss [Recovered/Resolved]
  - Weight decreased [Unknown]
  - Skin laceration [Recovered/Resolved]
  - Clavicle fracture [Unknown]
  - Joint dislocation [Recovered/Resolved]
  - Foot operation [Recovered/Resolved]
